FAERS Safety Report 9036291 (Version 1)
Quarter: 2013Q1

REPORT INFORMATION
  Report Type: Report from Study
  Country: US (occurrence: US)
  Receive Date: 20130129
  Receipt Date: 20130129
  Transmission Date: 20140127
  Serious: No
  Sender: FDA-Public Use
  Company Number: US-ABBOTT-12P-163-0889012-00

PATIENT
  Age: 43 Year
  Sex: Female
  Weight: 79.45 kg

DRUGS (7)
  1. HUMIRA 40 MG/0.8 ML PEN [Suspect]
     Indication: CROHN^S DISEASE
     Dates: start: 20111228, end: 20111228
  2. LYRICA [Concomitant]
     Indication: NERVOUS SYSTEM DISORDER
  3. CYMBALTA [Concomitant]
     Indication: NERVOUS SYSTEM DISORDER
  4. METHADONE [Concomitant]
     Indication: PAIN
  5. OXYCODONE [Concomitant]
     Indication: BREAKTHROUGH PAIN
  6. CELEBREX [Concomitant]
     Indication: BACK PAIN
  7. PRILOSEC [Concomitant]
     Indication: GASTROOESOPHAGEAL REFLUX DISEASE
     Dosage: PRESCRIPTION STRENGTH

REACTIONS (1)
  - Fatigue [Recovering/Resolving]
